FAERS Safety Report 4359098-1 (Version None)
Quarter: 2004Q2

REPORT INFORMATION
  Report Type: 
  Country: None (occurrence: None)
  Receive Date: 20040517
  Receipt Date: 20040517
  Transmission Date: 20050107
  Serious: Yes (Life-Threatening)
  Sender: FDA-Public Use
  Company Number: None

PATIENT
  Sex: Male
  Weight: 74.8435 kg

DRUGS (2)
  1. VIOXX [Suspect]
     Indication: ARTHRALGIA
     Dosage: ONE -TWO /DAY PO
     Route: 048
     Dates: start: 20040401, end: 20040413
  2. VIOXX [Suspect]
     Indication: PELVIC PAIN
     Dosage: ONE -TWO /DAY PO
     Route: 048
     Dates: start: 20040401, end: 20040413

REACTIONS (2)
  - PETECHIAE [None]
  - PLATELET COUNT DECREASED [None]
